FAERS Safety Report 12357657 (Version 2)
Quarter: 2016Q2

REPORT INFORMATION
  Report Type: Spontaneous
  Country: GB (occurrence: GB)
  Receive Date: 20160512
  Receipt Date: 20160607
  Transmission Date: 20160815
  Serious: Yes (Other)
  Sender: FDA-Public Use
  Company Number: GB-UCBSA-2016017040

PATIENT
  Sex: Male

DRUGS (2)
  1. MACROGOL [Concomitant]
     Active Substance: POLYETHYLENE GLYCOLS
     Indication: CONSTIPATION
     Dosage: UNK
  2. KEPPRA [Suspect]
     Active Substance: LEVETIRACETAM
     Indication: EPILEPSY
     Dosage: 7 ML, 2X/DAY (BID) (STRENGTH: 100 MG/ ML)
     Route: 048
     Dates: start: 20140606

REACTIONS (2)
  - Anal incontinence [Not Recovered/Not Resolved]
  - Constipation [Not Recovered/Not Resolved]
